FAERS Safety Report 9406238 (Version 1)
Quarter: 2013Q3

REPORT INFORMATION
  Report Type: Spontaneous
  Country: US (occurrence: US)
  Receive Date: 20130717
  Receipt Date: 20130717
  Transmission Date: 20140515
  Serious: No
  Sender: FDA-Public Use
  Company Number: US-BAUSCH-BL-2012-001709

PATIENT
  Age: 65 Year
  Sex: Female
  Weight: 65.83 kg

DRUGS (16)
  1. BESIVANCE (BESIFLOXACIN OPHTHALMIC SUSPENSION) 0.6% [Suspect]
     Indication: PREOPERATIVE CARE
     Dosage: 1 DROP; FOUR TIMES A DAY; LEFT EYE
     Route: 047
     Dates: start: 20121013, end: 20121015
  2. BESIVANCE (BESIFLOXACIN OPHTHALMIC SUSPENSION) 0.6% [Suspect]
     Indication: POSTOPERATIVE CARE
     Dosage: 1 DROP; EVERY THREE HOURS WHILE AWAKE; LEFT EYE
     Route: 047
     Dates: start: 20121016, end: 20121016
  3. BESIVANCE (BESIFLOXACIN OPHTHALMIC SUSPENSION) 0.6% [Suspect]
     Indication: OFF LABEL USE
     Dosage: 1 DROP; FOUR TIMES A DAY; LEFT EYE
     Route: 047
     Dates: start: 20121017, end: 20121021
  4. BESIVANCE (BESIFLOXACIN OPHTHALMIC SUSPENSION) 0.6% [Suspect]
     Dosage: 1 DROP; DAILY; LEFT EYE
     Route: 047
     Dates: start: 20121022, end: 20121022
  5. BESIVANCE (BESIFLOXACIN OPHTHALMIC SUSPENSION) 0.6% [Suspect]
     Dosage: 1 DROP; FOUR TIMES A DAY; RIGHT EYE
     Route: 047
     Dates: start: 20121103, end: 20121105
  6. BESIVANCE (BESIFLOXACIN OPHTHALMIC SUSPENSION) 0.6% [Suspect]
     Dosage: 1 DROP; EVERY THREE HOURS WHILE AWAKE; RIGHT EYE
     Route: 047
     Dates: start: 20121106, end: 20121106
  7. BESIVANCE (BESIFLOXACIN OPHTHALMIC SUSPENSION) 0.6% [Suspect]
     Dosage: 1 DROP; FOUR TIMES A DAY; RIGHT EYE
     Route: 047
     Dates: start: 20121107, end: 20121107
  8. NEPAFENAC [Concomitant]
     Indication: PREOPERATIVE CARE
     Dosage: 1 DROP; TWICE A DAY; LEFT EYE
     Route: 047
     Dates: start: 20121013, end: 20121105
  9. NEPAFENAC [Concomitant]
     Indication: POSTOPERATIVE CARE
     Dosage: 1 DROP; TWICE A DAY; RIGHT EYE
     Route: 047
     Dates: start: 20121103
  10. PREDNISOLONE ACETATE [Concomitant]
     Indication: POSTOPERATIVE CARE
     Dosage: 1 DROP; EVERY 3 HOURS WHILE AWAKE; LEFT EYE
     Route: 047
     Dates: start: 20121016, end: 20121016
  11. PREDNISOLONE ACETATE [Concomitant]
     Dosage: 1 DROP; FOUR TIMES A DAY; LEFT EYE
     Route: 047
     Dates: start: 20121017, end: 20121021
  12. PREDNISOLONE ACETATE [Concomitant]
     Dosage: 1 DROP; THREE TIMES A DAY; LEFT EYE
     Route: 047
     Dates: start: 20121022, end: 20121028
  13. PREDNISOLONE ACETATE [Concomitant]
     Dosage: 1 DROP; TWICE A DAY; LEFT EYE
     Route: 047
     Dates: start: 20121029, end: 20121104
  14. PREDNISOLONE ACETATE [Concomitant]
     Dosage: 1 DROP; DAILY; LEFT EYE
     Route: 047
     Dates: start: 20121105
  15. PREDNISOLONE ACETATE [Concomitant]
     Dosage: 1 DROP; EVERY 3 HOURS WHILE AWAKE; RIGHT EYE
     Route: 047
     Dates: start: 20121106, end: 20121106
  16. PREDNISOLONE ACETATE [Concomitant]
     Dosage: 1 DROP; FOUR TIMES A DAY; RIGHT EYE
     Route: 047
     Dates: start: 20121107

REACTIONS (13)
  - Inappropriate schedule of drug administration [Unknown]
  - Dysgeusia [Recovering/Resolving]
  - Gingival pain [Recovering/Resolving]
  - Sensitivity of teeth [Recovering/Resolving]
  - Glossodynia [Recovered/Resolved]
  - Insomnia [Recovered/Resolved]
  - Headache [Recovered/Resolved]
  - Throat tightness [Not Recovered/Not Resolved]
  - Dyspnoea [Not Recovered/Not Resolved]
  - Cold sweat [Not Recovered/Not Resolved]
  - Frequent bowel movements [Not Recovered/Not Resolved]
  - Faeces soft [Not Recovered/Not Resolved]
  - Mucous stools [Not Recovered/Not Resolved]
